FAERS Safety Report 20299272 (Version 1)
Quarter: 2022Q1

REPORT INFORMATION
  Report Type: Spontaneous
  Country: US (occurrence: US)
  Receive Date: 20220105
  Receipt Date: 20220105
  Transmission Date: 20220424
  Serious: Yes (Other)
  Sender: FDA-Public Use
  Company Number: US-AMNEAL PHARMACEUTICALS-2021-AMRX-05160

PATIENT
  Age: 16 Year
  Sex: Female

DRUGS (3)
  1. ADRENACLICK [Suspect]
     Active Substance: EPINEPHRINE
     Indication: Anaphylactic reaction
     Dosage: UNK
     Route: 030
  2. ADRENACLICK [Suspect]
     Active Substance: EPINEPHRINE
     Dosage: UNK
     Route: 042
  3. INFLIXIMAB [Concomitant]
     Active Substance: INFLIXIMAB
     Indication: Colitis
     Dosage: THIRD INFUSION (4 WEEKS FROM THE FIRST INFUSION) WAS 12 MCG/ML
     Route: 042

REACTIONS (2)
  - Lactic acidosis [Recovered/Resolved]
  - Hypotension [Recovered/Resolved]
